FAERS Safety Report 21458299 (Version 7)
Quarter: 2024Q1

REPORT INFORMATION
  Report Type: Spontaneous
  Country: US (occurrence: US)
  Receive Date: 20221014
  Receipt Date: 20240222
  Transmission Date: 20240409
  Serious: No
  Sender: FDA-Public Use
  Company Number: US-PFIZER INC-PV202200059140

PATIENT
  Age: 84 Year
  Sex: Female

DRUGS (5)
  1. IBRANCE [Suspect]
     Active Substance: PALBOCICLIB
     Indication: HER2 positive breast cancer
     Dosage: 125 MG
     Dates: start: 20220909
  2. IBRANCE [Suspect]
     Active Substance: PALBOCICLIB
     Dosage: 100 MG
     Dates: start: 2022
  3. IBRANCE [Suspect]
     Active Substance: PALBOCICLIB
     Dosage: 75 MG, CYCLIC, ONCE A DAY FOR 3 WEEKS AND THEN OFF FOR ONE WEEK
     Route: 048
     Dates: start: 20221123
  4. IBRANCE [Suspect]
     Active Substance: PALBOCICLIB
     Dosage: 75 MG
     Dates: start: 20240216
  5. LETROZOLE [Concomitant]
     Active Substance: LETROZOLE
     Indication: Breast cancer
     Dosage: 2.5 MG, DAILY
     Route: 048

REACTIONS (15)
  - Neoplasm progression [Unknown]
  - Drug intolerance [Unknown]
  - Taste disorder [Unknown]
  - Arthralgia [Unknown]
  - Alopecia [Unknown]
  - Fatigue [Unknown]
  - Packaging design issue [Unknown]
  - Limb injury [Unknown]
  - Muscular weakness [Unknown]
  - Trigeminal neuralgia [Not Recovered/Not Resolved]
  - Dental discomfort [Unknown]
  - Cardiac disorder [Unknown]
  - Product packaging difficult to open [Unknown]
  - Off label use [Unknown]
  - Off label use [Unknown]
